FAERS Safety Report 6456716-9 (Version None)
Quarter: 2009Q4

REPORT INFORMATION
  Report Type: 
  Country: None (occurrence: None)
  Receive Date: 20091125
  Receipt Date: 20091116
  Transmission Date: 20100525
  Serious: Yes (Hospitalization, Other)
  Sender: FDA-Public Use
  Company Number: CA-ABBOTT-09P-028-0609072-00

PATIENT
  Sex: Male
  Weight: 74.91 kg

DRUGS (7)
  1. LUPRON DEPOT [Suspect]
     Indication: PROSTATE CANCER
     Dates: start: 20081205
  2. METFORMIN [Concomitant]
     Indication: DRUG USE FOR UNKNOWN INDICATION
  3. RAMIPRIL [Concomitant]
     Indication: DRUG USE FOR UNKNOWN INDICATION
  4. GLYBURIDE [Concomitant]
     Indication: DRUG USE FOR UNKNOWN INDICATION
  5. CALCITE/VIT D [Concomitant]
     Indication: DRUG USE FOR UNKNOWN INDICATION
  6. ASAPHEN [Concomitant]
     Indication: DRUG USE FOR UNKNOWN INDICATION
  7. SUPEUDOL [Concomitant]
     Indication: DRUG USE FOR UNKNOWN INDICATION
     Dosage: 1-2 TABLETS EVERY 4-6 HOURS AS NEEDED

REACTIONS (2)
  - PAIN [None]
  - PROSTATE CANCER METASTATIC [None]
